FAERS Safety Report 18384624 (Version 2)
Quarter: 2020Q4

REPORT INFORMATION
  Report Type: Spontaneous
  Country: JP (occurrence: JP)
  Receive Date: 20201014
  Receipt Date: 20201118
  Transmission Date: 20210114
  Serious: Yes (Death)
  Sender: FDA-Public Use
  Company Number: JP-SAKK-2020SA284473AA

PATIENT

DRUGS (1)
  1. FABRAZYME [Suspect]
     Active Substance: AGALSIDASE BETA
     Indication: PRODUCT USED FOR UNKNOWN INDICATION
     Dosage: DAILY DOSE: 55 (UNIT, UNKNOWN)
     Route: 041
     Dates: start: 201010

REACTIONS (1)
  - Accident [Fatal]

NARRATIVE: CASE EVENT DATE: 202010
